FAERS Safety Report 9403310 (Version 2)
Quarter: 2013Q3

REPORT INFORMATION
  Report Type: Spontaneous
  Country: US (occurrence: US)
  Receive Date: 20130716
  Receipt Date: 20130805
  Transmission Date: 20140515
  Serious: Yes (Other)
  Sender: FDA-Public Use
  Company Number: US-TEVA-419199USA

PATIENT
  Age: 42 Year
  Sex: Female
  Weight: 84.9 kg

DRUGS (4)
  1. PARAGARD 380A [Suspect]
     Indication: CONTRACEPTION
     Route: 015
     Dates: start: 20110127
  2. LEVOTHYROXINE [Concomitant]
     Indication: HYPOTHYROIDISM
  3. MULTIVITAMINS [Concomitant]
  4. FACIFIUM HUSK [Concomitant]

REACTIONS (1)
  - Device dislocation [Recovered/Resolved]
